FAERS Safety Report 9905937 (Version 1)
Quarter: 2013Q2

REPORT INFORMATION
  Report Type: Spontaneous
  Country: US (occurrence: None)
  Receive Date: 20130305
  Receipt Date: 20130305
  Transmission Date: 20140414
  Serious: Yes (Hospitalization, Other)
  Sender: FDA-Public Use
  Company Number: 163-21880-12041766

PATIENT
  Age: 68 Year
  Sex: Male

DRUGS (1)
  1. REVLIMID (LENALIDOMIDE) (5 MILLIGRAM, CAPSULES) [Suspect]
     Indication: MYELODYSPLASTIC SYNDROME
     Route: 048
     Dates: start: 20120406, end: 20120412

REACTIONS (3)
  - Atrial fibrillation [None]
  - Pyrexia [None]
  - Tremor [None]
